FAERS Safety Report 15990684 (Version 1)
Quarter: 2019Q1

REPORT INFORMATION
  Report Type: Spontaneous
  Country: US (occurrence: US)
  Receive Date: 20190221
  Receipt Date: 20190221
  Transmission Date: 20190418
  Serious: No
  Sender: FDA-Public Use
  Company Number: US-BRISTOL-MYERS SQUIBB COMPANY-BMS-2019-017683

PATIENT

DRUGS (3)
  1. KENALOG [Suspect]
     Active Substance: TRIAMCINOLONE ACETONIDE
     Indication: ALOPECIA UNIVERSALIS
     Dosage: UNK
     Route: 026
     Dates: start: 2003, end: 2015
  2. PREDNISONE. [Concomitant]
     Active Substance: PREDNISONE
     Indication: ALOPECIA UNIVERSALIS
     Dosage: UNK
     Route: 048
     Dates: start: 2003, end: 2015
  3. ROGAINE [Concomitant]
     Active Substance: MINOXIDIL
     Indication: ALOPECIA UNIVERSALIS
     Dosage: UNK
     Route: 065
     Dates: start: 2003, end: 2015

REACTIONS (1)
  - Treatment failure [Unknown]
